FAERS Safety Report 8792844 (Version 1)
Quarter: 2012Q4

REPORT INFORMATION
  Report Type: 
  Country: ES (occurrence: ES)
  Receive Date: 20120918
  Receipt Date: 20120918
  Transmission Date: 20130627
  Serious: Yes (Death, Hospitalization)
  Sender: FDA-Public Use
  Company Number: ES-ELI_LILLY_AND_COMPANY-ES201209002021

PATIENT
  Age: 82 Year
  Sex: Female
  Weight: 72 kg

DRUGS (8)
  1. FORSTEO [Suspect]
     Indication: OSTEOPOROSIS
     Dosage: 20 ug, qd
     Route: 058
     Dates: start: 20110209, end: 20120627
  2. CALCIUM CARBONATE [Concomitant]
     Indication: OSTEOARTHRITIS
     Dosage: UNK UNK, qd
     Route: 048
  3. METHOCARBAMOL [Concomitant]
     Indication: OSTEOARTHRITIS
     Dosage: UNK, bid
     Route: 048
  4. HYDROMORPHONE [Concomitant]
     Indication: OSTEOARTHRITIS
     Dosage: 4 mg, qd
     Route: 048
  5. CITALOPRAM [Concomitant]
     Indication: DEPRESSION
     Dosage: 15 mg, qd
     Route: 048
  6. TRAZODONE [Concomitant]
     Indication: DEPRESSION
     Dosage: 50 mg, qd
     Route: 048
  7. OMEPRAZOL [Concomitant]
     Dosage: UNK, qd
     Route: 048
  8. DONEPEZIL [Concomitant]
     Dosage: 10 mg, qd
     Route: 048

REACTIONS (3)
  - Multi-organ failure [Fatal]
  - Post procedural complication [Fatal]
  - Peritonitis [Unknown]
